FAERS Safety Report 21715639 (Version 1)
Quarter: 2022Q4

REPORT INFORMATION
  Report Type: Report from Study
  Country: EG (occurrence: EG)
  Receive Date: 20221212
  Receipt Date: 20221212
  Transmission Date: 20230113
  Serious: Yes (Other)
  Sender: FDA-Public Use
  Company Number: EG-002147023-NVSC2022EG287558

PATIENT
  Sex: Female

DRUGS (3)
  1. COSENTYX [Suspect]
     Active Substance: SECUKINUMAB
     Indication: Psoriatic arthropathy
     Dosage: 2 DOSAGE FORM, QMO
     Route: 058
     Dates: start: 20170401
  2. COSENTYX [Suspect]
     Active Substance: SECUKINUMAB
     Dosage: 1 DOSAGE FORM, QMO
     Route: 058
  3. LEVOTHYROXINE [Concomitant]
     Active Substance: LEVOTHYROXINE
     Indication: Thyroid stimulating hormone deficiency
     Dosage: UNK (2 TO 3 YEARS AGO, EMPTY STOMACH)
     Route: 065

REACTIONS (6)
  - Hypokinesia [Not Recovered/Not Resolved]
  - Arthritis [Not Recovered/Not Resolved]
  - Joint effusion [Not Recovered/Not Resolved]
  - Joint swelling [Not Recovered/Not Resolved]
  - Hypertension [Not Recovered/Not Resolved]
  - Fatigue [Unknown]
